FAERS Safety Report 20637062 (Version 1)
Quarter: 2022Q1

REPORT INFORMATION
  Report Type: Spontaneous
  Country: US (occurrence: US)
  Receive Date: 20220325
  Receipt Date: 20220325
  Transmission Date: 20220423
  Serious: No
  Sender: FDA-Public Use
  Company Number: US-PFIZER INC-202200420412

PATIENT
  Age: 67 Year
  Sex: Female

DRUGS (1)
  1. IBRANCE [Suspect]
     Active Substance: PALBOCICLIB
     Indication: Breast cancer
     Dosage: DAILY WITH FOOD FOR 21 DAYS, THEN OFF FOR 7 DAYS TO COMPLETE A 28-DAY CYCLE
     Route: 048
     Dates: start: 20220301

REACTIONS (1)
  - Diarrhoea [Unknown]
